FAERS Safety Report 4907648-6 (Version None)
Quarter: 2006Q1

REPORT INFORMATION
  Report Type: 
  Country: None (occurrence: None)
  Receive Date: 20060210
  Receipt Date: 20051001
  Transmission Date: 20060701
  Serious: Yes (Hospitalization)
  Sender: FDA-Public Use
  Company Number: PR-MERCK-0510USA00767

PATIENT
  Age: 57 Year
  Sex: Male
  Weight: 86 kg

DRUGS (4)
  1. VIOXX [Suspect]
     Indication: OSTEOARTHRITIS
     Route: 048
     Dates: start: 20030101, end: 20040101
  2. NAPROXEN [Concomitant]
     Route: 065
  3. TRAZODONE HYDROCHLORIDE [Concomitant]
     Route: 065
  4. DIAZEPAM [Concomitant]
     Route: 065

REACTIONS (8)
  - BASILAR MIGRAINE [None]
  - BLINDNESS [None]
  - BRAIN DAMAGE [None]
  - DISTURBANCE IN ATTENTION [None]
  - FATIGUE [None]
  - HEADACHE [None]
  - HYPERTENSION [None]
  - MEMORY IMPAIRMENT [None]
